FAERS Safety Report 9735530 (Version 1)
Quarter: 2013Q4

REPORT INFORMATION
  Report Type: Spontaneous
  Country: US (occurrence: US)
  Receive Date: 20131206
  Receipt Date: 20131206
  Transmission Date: 20140711
  Serious: No
  Sender: FDA-Public Use
  Company Number: US-GILEAD-2009-0023548

PATIENT
  Age: 56 Year
  Sex: Female

DRUGS (16)
  1. LETAIRIS [Suspect]
     Indication: PULMONARY ARTERIAL HYPERTENSION
     Route: 048
     Dates: start: 20070821
  2. REMODULIN [Concomitant]
  3. COUMADIN [Concomitant]
  4. PHENOBARBITAL [Concomitant]
  5. GLYBURIDE [Concomitant]
  6. GLUCOPHAGE [Concomitant]
  7. JANUVIA [Concomitant]
  8. EFFEXOR [Concomitant]
  9. BYETTA [Concomitant]
  10. AMARYL [Concomitant]
  11. RANITIDINE [Concomitant]
  12. PROTONIX [Concomitant]
  13. CALCIUM [Concomitant]
  14. POTASSIUM [Concomitant]
  15. SYNTHROID [Concomitant]
  16. MVI [Concomitant]

REACTIONS (2)
  - Oedema peripheral [Recovering/Resolving]
  - Weight increased [Recovering/Resolving]
